FAERS Safety Report 6264267-X (Version None)
Quarter: 2009Q3

REPORT INFORMATION
  Report Type: 
  Country: None (occurrence: None)
  Receive Date: 20090706
  Receipt Date: 20081027
  Transmission Date: 20100115
  Serious: Yes (Other)
  Sender: FDA-Public Use
  Company Number: 593748

PATIENT
  Age: 71 Year
  Sex: Male
  Weight: 117 kg

DRUGS (2)
  1. CELLCEPT [Suspect]
     Indication: MYASTHENIA GRAVIS
     Dosage: 1500 MG DAILY 2 PER DAY
     Dates: start: 20060101
  2. MESTINON [Concomitant]

REACTIONS (1)
  - PROSTATE CANCER [None]
